FAERS Safety Report 12192221 (Version 2)
Quarter: 2016Q1

REPORT INFORMATION
  Report Type: Spontaneous
  Country: US (occurrence: US)
  Receive Date: 20160318
  Receipt Date: 20160324
  Transmission Date: 20160526
  Serious: No
  Sender: FDA-Public Use
  Company Number: US-PFIZER INC-2016162468

PATIENT

DRUGS (1)
  1. AXITINIB [Suspect]
     Active Substance: AXITINIB
     Indication: METASTATIC RENAL CELL CARCINOMA
     Dosage: 5-7 MG, 2X/DAY

REACTIONS (4)
  - Fatigue [Unknown]
  - Blood pressure increased [Unknown]
  - Diarrhoea [Unknown]
  - Pain in extremity [Unknown]
